FAERS Safety Report 18461738 (Version 1)
Quarter: 2020Q4

REPORT INFORMATION
  Report Type: Spontaneous
  Country: BE (occurrence: BE)
  Receive Date: 20201104
  Receipt Date: 20201104
  Transmission Date: 20210114
  Serious: Yes (Hospitalization)
  Sender: FDA-Public Use
  Company Number: BE-TEVA-2020-BE-1844359

PATIENT
  Sex: Female
  Weight: 59.5 kg

DRUGS (7)
  1. LASIX [Concomitant]
     Active Substance: FUROSEMIDE
  2. ELIQUIS [Suspect]
     Active Substance: APIXABAN
     Dosage: 2 DOSAGE FORMS
     Route: 048
     Dates: start: 20190124, end: 20201010
  3. NEOTIGASON [Suspect]
     Active Substance: ACITRETIN
     Indication: PSORIASIS
     Route: 065
  4. LANOXIN 125 [Concomitant]
  5. PANTOMED [Concomitant]
  6. ATACAND PLUS [Concomitant]
     Active Substance: CANDESARTAN CILEXETIL\HYDROCHLOROTHIAZIDE
     Dosage: 1 DOSAGE FORMS
  7. ASAFLOW [Concomitant]
     Active Substance: ASPIRIN

REACTIONS (8)
  - Nephrotic syndrome [Recovering/Resolving]
  - Bedridden [Recovering/Resolving]
  - Muscle rigidity [Recovering/Resolving]
  - Freezing phenomenon [Recovering/Resolving]
  - Feeding disorder [Recovering/Resolving]
  - Parkinsonism [Recovering/Resolving]
  - Cognitive disorder [Recovering/Resolving]
  - Renal failure [Recovering/Resolving]

NARRATIVE: CASE EVENT DATE: 20190122
